FAERS Safety Report 9483100 (Version 2)
Quarter: 2013Q3

REPORT INFORMATION
  Report Type: Spontaneous
  Country: CN (occurrence: CN)
  Receive Date: 20130828
  Receipt Date: 20130828
  Transmission Date: 20140515
  Serious: Yes (Hospitalization, Other)
  Sender: FDA-Public Use
  Company Number: CN-ASTRAZENECA-2013SE55335

PATIENT
  Age: 70 Year
  Sex: Male

DRUGS (1)
  1. PLENDIL [Suspect]
     Indication: HYPERTENSION
     Route: 048

REACTIONS (4)
  - Hypertension [Unknown]
  - Oedema peripheral [Recovering/Resolving]
  - Cardiac enzymes increased [Recovered/Resolved]
  - Drug effect incomplete [Unknown]
